FAERS Safety Report 5656281-X (Version None)
Quarter: 2008Q1

REPORT INFORMATION
  Report Type: 
  Country: None (occurrence: None)
  Receive Date: 20080309
  Receipt Date: 20071105
  Transmission Date: 20080703
  Serious: No
  Sender: FDA-Public Use
  Company Number: US-BAYER-200712066BCC

PATIENT
  Age: 32 Year
  Sex: Male
  Weight: 84 kg

DRUGS (4)
  1. ALEVE [Suspect]
     Indication: PAIN
     Dosage: UNIT DOSE: 220 MG
     Route: 048
     Dates: start: 20070101
  2. NICORETTE [Concomitant]
  3. EQUATE MULTIVITAMINS [Concomitant]
  4. OSTEO BI-FLEX [Concomitant]

REACTIONS (1)
  - DRUG SCREEN POSITIVE [None]
